FAERS Safety Report 19804604 (Version 2)
Quarter: 2021Q4

REPORT INFORMATION
  Report Type: Spontaneous
  Country: GB (occurrence: GB)
  Receive Date: 20210908
  Receipt Date: 20211013
  Transmission Date: 20220303
  Serious: Yes (Other)
  Sender: FDA-Public Use
  Company Number: GB-MYLANLABS-2021M1058661

PATIENT
  Age: 51 Year
  Sex: Female
  Weight: 67.2 kg

DRUGS (4)
  1. CLOZARIL [Suspect]
     Active Substance: CLOZAPINE
     Indication: Schizophrenia
     Dosage: UNK
     Route: 048
     Dates: start: 20200304
  2. CLOZARIL [Suspect]
     Active Substance: CLOZAPINE
     Dosage: 450 MILLIGRAM, QD
     Route: 048
  3. BUPRENORPHINE [Concomitant]
     Active Substance: BUPRENORPHINE
     Dosage: 1 DOSAGE FORM, QW, 5MCG/HOUR
  4. LAXIDO ORANGE [Concomitant]
     Dosage: UNK, QD, 1-3 SACHETS DAILY

REACTIONS (5)
  - Neoplasm malignant [Recovered/Resolved]
  - Pain [Recovered/Resolved]
  - Blood bicarbonate increased [Recovered/Resolved]
  - Blood creatinine decreased [Recovered/Resolved]
  - Lymphocyte count decreased [Recovered/Resolved]

NARRATIVE: CASE EVENT DATE: 20210319
